FAERS Safety Report 9734081 (Version 2)
Quarter: 2015Q2

REPORT INFORMATION
  Report Type: Spontaneous
  Country: US (occurrence: US)
  Receive Date: 20131205
  Receipt Date: 20150404
  Transmission Date: 20150821
  Serious: No
  Sender: FDA-Public Use
  Company Number: US-B.I. PHARMACEUTICALS,INC./RIDGEFIELD-2013-BI-38983BP

PATIENT
  Sex: Female
  Weight: 49.9 kg

DRUGS (1)
  1. COMBIVENT [Suspect]
     Active Substance: ALBUTEROL SULFATE\IPRATROPIUM BROMIDE
     Indication: EMPHYSEMA
     Dosage: 8 PUF
     Route: 055
     Dates: start: 201305

REACTIONS (2)
  - Prescribed overdose [Not Recovered/Not Resolved]
  - Cataract [Recovered/Resolved]

NARRATIVE: CASE EVENT DATE: 2013
